FAERS Safety Report 20938522 (Version 2)
Quarter: 2022Q2

REPORT INFORMATION
  Report Type: Spontaneous
  Country: EE (occurrence: EE)
  Receive Date: 20220609
  Receipt Date: 20220613
  Transmission Date: 20220721
  Serious: Yes (Death, Other)
  Sender: FDA-Public Use
  Company Number: EE-Orion Corporation ORION PHARMA-ALPR2022-0002

PATIENT
  Age: 71 Year
  Sex: Female

DRUGS (1)
  1. ALPRAZOLAM [Suspect]
     Active Substance: ALPRAZOLAM
     Indication: Depression
     Dosage: UNK
     Dates: start: 2015

REACTIONS (4)
  - Drowning [Fatal]
  - Drug dependence [Unknown]
  - Product prescribing error [Unknown]
  - Off label use [Unknown]
